FAERS Safety Report 11443069 (Version 4)
Quarter: 2016Q4

REPORT INFORMATION
  Report Type: Spontaneous
  Country: PT (occurrence: PT)
  Receive Date: 20150901
  Receipt Date: 20161017
  Transmission Date: 20170206
  Serious: Yes (Death, Hospitalization, Other)
  Sender: FDA-Public Use
  Company Number: PT-GILEAD-2015-0168985

PATIENT
  Sex: Male

DRUGS (6)
  1. RIBAVIRIN. [Concomitant]
     Active Substance: RIBAVIRIN
     Indication: HEPATITIS C
     Dosage: 600 MG, UNK
     Route: 065
     Dates: start: 20150626, end: 20150810
  2. COLESTIRAMINA [Interacting]
     Active Substance: CHOLESTYRAMINE
     Indication: PRODUCT USED FOR UNKNOWN INDICATION
     Dosage: UNK
     Route: 065
  3. ALBUMINE BAXTER [Interacting]
     Active Substance: ALBUMIN HUMAN
     Indication: PRODUCT USED FOR UNKNOWN INDICATION
     Dosage: UNK
     Route: 065
  4. HARVONI [Suspect]
     Active Substance: LEDIPASVIR\SOFOSBUVIR
     Indication: HEPATITIS C
     Dosage: UNK
     Route: 045
     Dates: start: 20150626, end: 20150810
  5. SPIRONOLACTONE. [Concomitant]
     Active Substance: SPIRONOLACTONE
  6. FUROSEMIDE. [Concomitant]
     Active Substance: FUROSEMIDE

REACTIONS (10)
  - Septic shock [Fatal]
  - Acute on chronic liver failure [Fatal]
  - Drug interaction [Unknown]
  - Wrong technique in product usage process [Unknown]
  - Urinary tract infection [Not Recovered/Not Resolved]
  - Peritonitis [Not Recovered/Not Resolved]
  - Treatment noncompliance [None]
  - Hepatic failure [Fatal]
  - Hepatorenal syndrome [Unknown]
  - Refusal of treatment by patient [None]

NARRATIVE: CASE EVENT DATE: 2015
